FAERS Safety Report 10778499 (Version 1)
Quarter: 2015Q1

REPORT INFORMATION
  Report Type: Spontaneous
  Country: DK (occurrence: DK)
  Receive Date: 20150210
  Receipt Date: 20150210
  Transmission Date: 20150721
  Serious: Yes (Hospitalization)
  Sender: FDA-Public Use
  Company Number: PHHY2013DK006447

PATIENT
  Age: 34 Year
  Sex: Female

DRUGS (1)
  1. LINDYNETTE [Suspect]
     Active Substance: ETHINYL ESTRADIOL\GESTODENE
     Indication: CONTRACEPTION
     Route: 048
     Dates: end: 201206

REACTIONS (11)
  - Vomiting [Unknown]
  - Pupillary disorder [Unknown]
  - Balance disorder [Unknown]
  - Vision blurred [Recovering/Resolving]
  - Vertebral artery occlusion [Unknown]
  - Hypoaesthesia [Unknown]
  - Dizziness [Unknown]
  - Coordination abnormal [Unknown]
  - Nausea [Unknown]
  - Neck pain [Unknown]
  - Cerebral thrombosis [Unknown]

NARRATIVE: CASE EVENT DATE: 20120612
